FAERS Safety Report 8552477-8 (Version None)
Quarter: 2012Q3

REPORT INFORMATION
  Report Type: 
  Country: None (occurrence: None)
  Receive Date: 20120731
  Receipt Date: 20120723
  Transmission Date: 20120928
  Serious: Yes (Hospitalization)
  Sender: FDA-Public Use
  Company Number: US-BAYER-2012-026985

PATIENT
  Age: 27 Year
  Sex: Female
  Weight: 56 kg

DRUGS (9)
  1. YASMIN [Suspect]
     Dosage: UNK
     Route: 048
     Dates: start: 20060701, end: 20071201
  2. YAZ [Suspect]
     Indication: ACNE
     Dosage: UNK
     Dates: start: 20060501, end: 20060701
  3. HYOSCYAMINE [Concomitant]
  4. TOPAMAX [Concomitant]
  5. DROSPIRENONE AND ETHINYL ESTRADIOL [Suspect]
     Indication: ACNE
     Dosage: UNK
     Dates: start: 20060901, end: 20091001
  6. YASMIN [Suspect]
     Indication: ACNE
     Dosage: UNK
     Route: 048
     Dates: start: 20050801, end: 20060501
  7. NADOLOL [Concomitant]
  8. PROPOXYPHENE HCL [Concomitant]
  9. PHENERGAN HCL [Concomitant]

REACTIONS (7)
  - CHOLECYSTITIS [None]
  - ABDOMINAL PAIN [None]
  - EMOTIONAL DISTRESS [None]
  - GALLBLADDER DISORDER [None]
  - PAIN [None]
  - ANXIETY [None]
  - GENERAL PHYSICAL HEALTH DETERIORATION [None]
